FAERS Safety Report 13539902 (Version 1)
Quarter: 2017Q2

REPORT INFORMATION
  Report Type: Spontaneous
  Country: US (occurrence: US)
  Receive Date: 20170512
  Receipt Date: 20170512
  Transmission Date: 20170830
  Serious: No
  Sender: FDA-Public Use
  Company Number: US-BAYER-2017-090120

PATIENT
  Age: 68 Year
  Sex: Female
  Weight: 57 kg

DRUGS (2)
  1. ALEVE [Suspect]
     Active Substance: NAPROXEN SODIUM
     Indication: PAIN
     Dosage: 1 DF,EVERY 8 HOURS
     Route: 048
     Dates: start: 20170504, end: 20170511
  2. MULTIVITAMIN [Concomitant]
     Active Substance: VITAMINS

REACTIONS (4)
  - Product use issue [Unknown]
  - Drug ineffective [Unknown]
  - Wrong technique in product usage process [Unknown]
  - Physical product label issue [Unknown]

NARRATIVE: CASE EVENT DATE: 20170504
